FAERS Safety Report 13539255 (Version 1)
Quarter: 2017Q2

REPORT INFORMATION
  Report Type: Spontaneous
  Country: US (occurrence: US)
  Receive Date: 20170512
  Receipt Date: 20170512
  Transmission Date: 20170830
  Serious: Yes (Hospitalization)
  Sender: FDA-Public Use
  Company Number: US-B.I. PHARMACEUTICALS,INC./RIDGEFIELD-2017-BI-026137

PATIENT
  Age: 65 Year
  Sex: Male

DRUGS (1)
  1. PRADAXA [Suspect]
     Active Substance: DABIGATRAN ETEXILATE MESYLATE
     Indication: PRODUCT USED FOR UNKNOWN INDICATION
     Route: 065

REACTIONS (9)
  - Pneumonia [Unknown]
  - Acute kidney injury [Unknown]
  - Anaemia [Unknown]
  - Hypoxia [Unknown]
  - Haematuria [Unknown]
  - Sepsis syndrome [Unknown]
  - Respiratory failure [Unknown]
  - Lower gastrointestinal haemorrhage [Unknown]
  - Cellulitis [Unknown]

NARRATIVE: CASE EVENT DATE: 20140514
